FAERS Safety Report 9635221 (Version 4)
Quarter: 2014Q1

REPORT INFORMATION
  Report Type: Report from Study
  Country: GB (occurrence: GB)
  Receive Date: 20131021
  Receipt Date: 20140312
  Transmission Date: 20141002
  Serious: Yes (Death, Hospitalization)
  Sender: FDA-Public Use
  Company Number: GB-PFIZER INC-2013296123

PATIENT
  Age: 63 Year
  Sex: Female
  Weight: 53.2 kg

DRUGS (22)
  1. TYGACIL [Suspect]
     Indication: SEPSIS
     Dosage: 100 MG, SINGLE
     Route: 042
     Dates: start: 20100821, end: 20100821
  2. TYGACIL [Suspect]
     Dosage: 50 MG, 2X/DAY
     Route: 042
     Dates: start: 20100821, end: 20100830
  3. OCTREOTIDE [Concomitant]
     Dosage: UNK
     Route: 058
     Dates: start: 20100830, end: 20100929
  4. FLUCONAZOLE [Concomitant]
     Indication: SEPSIS
     Dosage: UNK
     Route: 042
     Dates: start: 20100831, end: 20100928
  5. METRONIDAZOLE [Concomitant]
     Indication: SEPSIS
     Dosage: UNK
     Route: 042
     Dates: start: 20100831, end: 20100928
  6. CIPROFLOXACIN [Concomitant]
     Indication: SEPSIS
     Dosage: UNK
     Route: 042
     Dates: start: 20100831, end: 20100928
  7. VANCOMYCIN [Concomitant]
     Indication: SEPSIS
     Dosage: UNK
     Route: 042
     Dates: start: 20100901, end: 20100902
  8. HYDROCORTISONE [Concomitant]
     Dosage: UNK
     Route: 042
     Dates: start: 20100831, end: 20100903
  9. CLOPIDOGREL [Concomitant]
     Dosage: UNK
     Dates: start: 20100906, end: 20100923
  10. LINEZOLID [Concomitant]
     Indication: SEPSIS
     Dosage: UNK
     Route: 042
     Dates: start: 20100906, end: 20100907
  11. PARACETAMOL [Concomitant]
     Dosage: UNK
     Dates: start: 20100811, end: 20100925
  12. OMEPRAZOLE [Concomitant]
     Dosage: UNK
     Route: 042
     Dates: start: 20100830
  13. PROPOFOL [Concomitant]
     Dosage: UNK
     Route: 042
     Dates: start: 20100830, end: 20100906
  14. ALFENTANIL [Concomitant]
     Dosage: UNK
     Route: 042
     Dates: start: 20100831
  15. CO-TRIMOXAZOLE [Concomitant]
     Indication: SEPSIS
     Dosage: UNK
     Route: 042
     Dates: start: 20100910, end: 20100914
  16. DIHYDROCODEINE [Concomitant]
     Dosage: UNK
     Route: 048
     Dates: start: 20100815, end: 20100828
  17. AZTREONAM [Concomitant]
     Indication: SEPSIS
     Dosage: UNK
     Route: 042
     Dates: start: 20100923, end: 20100928
  18. DICLOFENAC [Concomitant]
     Dosage: UNK
     Route: 048
     Dates: start: 20100816, end: 20100825
  19. NORADRENALINE [Concomitant]
     Dosage: UNK
     Route: 042
     Dates: start: 20100830
  20. VASOPRESSIN INJECTION [Concomitant]
     Dosage: UNK
     Route: 042
     Dates: start: 20100831, end: 20100831
  21. GENTAMICIN [Concomitant]
     Dosage: UNK
     Route: 042
     Dates: start: 20100913, end: 20100917
  22. TEICOPLANIN [Concomitant]
     Dosage: UNK
     Route: 042
     Dates: start: 20100923, end: 20100923

REACTIONS (1)
  - Pseudomonas infection [Fatal]
